FAERS Safety Report 25701061 (Version 1)
Quarter: 2025Q3

REPORT INFORMATION
  Report Type: Spontaneous
  Country: US (occurrence: None)
  Receive Date: 20250818
  Receipt Date: 20250818
  Transmission Date: 20251020
  Serious: Yes (Death)
  Sender: FDA-CTU
  Company Number: None

PATIENT
  Age: 74 Year
  Sex: Male

DRUGS (9)
  1. REVLIMID [Suspect]
     Active Substance: LENALIDOMIDE
     Indication: Plasma cell myeloma
     Dosage: FREQUENCY : DAILY;?
     Dates: start: 20250517
  2. ASPIRIN 81MG EC LOW DOSE TABLETS [Concomitant]
  3. CALCIUM GARB 500MG CHEWTABLETS [Concomitant]
  4. DOCUSATE SODIUM 100MG SOFT GELS [Concomitant]
  5. FENOFIBRATE 54MG TABLETS [Concomitant]
  6. FISH OIL 300MG CAPSULES [Concomitant]
  7. ONDANSETRON [Concomitant]
     Active Substance: ONDANSETRON
  8. POLYETH GLYC 3350 NF PWDR PACKS [Concomitant]
  9. VITAMIN C 1000MG TABLETS [Concomitant]

REACTIONS (1)
  - Death [None]
